FAERS Safety Report 13650856 (Version 2)
Quarter: 2017Q3

REPORT INFORMATION
  Report Type: Spontaneous
  Country: US (occurrence: US)
  Receive Date: 20170614
  Receipt Date: 20170727
  Transmission Date: 20171127
  Serious: Yes (Hospitalization)
  Sender: FDA-Public Use
  Company Number: US-WEST-WARD PHARMACEUTICALS CORP.-US-H14001-17-01881

PATIENT
  Age: 14 Year
  Sex: Male

DRUGS (8)
  1. LITHIUM. [Suspect]
     Active Substance: LITHIUM
     Indication: AGGRESSION
     Route: 048
     Dates: start: 2010, end: 201409
  2. LITHIUM. [Suspect]
     Active Substance: LITHIUM
     Route: 048
  3. ARIPIPRAZOLE. [Suspect]
     Active Substance: ARIPIPRAZOLE
     Route: 048
  4. LITHIUM. [Suspect]
     Active Substance: LITHIUM
     Route: 048
  5. LITHIUM. [Suspect]
     Active Substance: LITHIUM
     Route: 048
  6. ARIPIPRAZOLE. [Suspect]
     Active Substance: ARIPIPRAZOLE
     Indication: AGGRESSION
     Route: 048
  7. GUANFACINE. [Suspect]
     Active Substance: GUANFACINE
     Route: 048
  8. GUANFACINE. [Suspect]
     Active Substance: GUANFACINE
     Indication: AGGRESSION
     Route: 048

REACTIONS (1)
  - Atrioventricular block first degree [Recovered/Resolved]

NARRATIVE: CASE EVENT DATE: 20140915
